FAERS Safety Report 4834671-2 (Version None)
Quarter: 2005Q4

REPORT INFORMATION
  Report Type: 
  Country: None (occurrence: None)
  Receive Date: 20051122
  Receipt Date: 20051024
  Transmission Date: 20060501
  Serious: Yes (Other)
  Sender: FDA-Public Use
  Company Number: AU-GLAXOSMITHKLINE-B0398546A

PATIENT
  Age: 53 Year
  Sex: Female
  Weight: 88 kg

DRUGS (6)
  1. LAMICTAL [Suspect]
     Indication: DEPRESSION
     Route: 065
  2. ALLERGON [Concomitant]
  3. WARFARIN [Concomitant]
  4. LIPITOR [Concomitant]
  5. KARVEA [Concomitant]
  6. THYROXINE [Concomitant]

REACTIONS (3)
  - ANOSMIA [None]
  - LIVER FUNCTION TEST ABNORMAL [None]
  - NAUSEA [None]
